FAERS Safety Report 6098729-5 (Version None)
Quarter: 2009Q1

REPORT INFORMATION
  Report Type: 
  Country: None (occurrence: None)
  Receive Date: 20090302
  Receipt Date: 20090218
  Transmission Date: 20090719
  Serious: Yes (Hospitalization, Other)
  Sender: FDA-Public Use
  Company Number: JP-ELI_LILLY_AND_COMPANY-JP200901003866

PATIENT
  Sex: Female

DRUGS (20)
  1. SOMATROPIN [Suspect]
     Indication: GROWTH HORMONE DEFICIENCY
     Dosage: 0.2 MG, DAILY (1/D)
     Route: 058
     Dates: start: 20060607
  2. RALOXIFENE HCL [Concomitant]
     Indication: OSTEOPOROSIS
     Dosage: 60 MG, DAILY (1/D)
     Route: 048
     Dates: start: 20071003, end: 20081008
  3. LEVOTHYROXINE SODIUM [Concomitant]
     Indication: SECONDARY HYPOTHYROIDISM
     Dosage: 150 UG, DAILY (1/D)
     Route: 048
  4. HYDROCORTISONE [Concomitant]
     Indication: SECONDARY ADRENOCORTICAL INSUFFICIENCY
     Dosage: 15 MG, DAILY (1/D)
     Route: 048
  5. PHENYTOIN [Concomitant]
     Indication: PROPHYLAXIS
     Dosage: 200 MG, DAILY (1/D)
     Route: 048
  6. CONJUGATED ESTROGENS [Concomitant]
     Indication: SECONDARY HYPOGONADISM
     Dosage: 0.625 MG, DAILY (1/D)
     Route: 048
     Dates: end: 20070905
  7. CHLORMADINONE ACETATE TAB [Concomitant]
     Indication: SECONDARY HYPOGONADISM
     Dosage: 2 MG, DAILY (1/D)
     Route: 048
     Dates: end: 20070905
  8. SIMVASTATIN [Concomitant]
     Indication: LIPID METABOLISM DISORDER
     Dosage: 5 MG, DAILY (1/D)
     Route: 048
     Dates: end: 20070612
  9. DESMOPRESSIN ACETATE [Concomitant]
     Indication: DIABETES INSIPIDUS
     Dosage: 2.5 MG, DAILY (1/D)
     Route: 045
  10. FENOFIBRATE [Concomitant]
     Indication: LIPID METABOLISM DISORDER
     Dosage: 67 MG, DAILY (1/D)
     Route: 048
     Dates: start: 20070613, end: 20070820
  11. FENOFIBRATE [Concomitant]
     Dosage: 67 MG, DAILY (1/D)
     Route: 048
     Dates: start: 20071003, end: 20080224
  12. FENOFIBRATE [Concomitant]
     Dosage: 67 MG, DAILY (1/D)
     Route: 048
     Dates: start: 20080326, end: 20080620
  13. FENOFIBRATE [Concomitant]
     Dosage: 134 MG, DAILY (1/D)
     Route: 048
     Dates: start: 20080718, end: 20081007
  14. FENOFIBRATE [Concomitant]
     Dosage: 134 MG, DAILY (1/D)
     Route: 048
     Dates: start: 20081114
  15. ATORVASTATIN CALCIUM [Concomitant]
     Indication: LIPID METABOLISM DISORDER
     Dosage: 5 MG, DAILY (1/D)
     Route: 048
     Dates: start: 20070821, end: 20071002
  16. ATORVASTATIN CALCIUM [Concomitant]
     Dosage: 5 MG, DAILY (1/D)
     Route: 048
     Dates: start: 20090109
  17. BEZAFIBRATE [Concomitant]
     Indication: LIPID METABOLISM DISORDER
     Dosage: 400 MG, DAILY (1/D)
     Route: 048
     Dates: start: 20080225, end: 20080325
  18. BEZAFIBRATE [Concomitant]
     Dosage: 400 MG, DAILY (1/D)
     Route: 048
     Dates: start: 20080621, end: 20080717
  19. BEZAFIBRATE [Concomitant]
     Dosage: 400 MG, DAILY (1/D)
     Route: 048
     Dates: start: 20081008, end: 20081113
  20. EZETIMIBE [Concomitant]
     Indication: LIPID METABOLISM DISORDER
     Dosage: 10 MG, DAILY (1/D)
     Route: 048
     Dates: start: 20080813, end: 20090108

REACTIONS (1)
  - DEEP VEIN THROMBOSIS [None]
